FAERS Safety Report 6659053-2 (Version None)
Quarter: 2010Q1

REPORT INFORMATION
  Report Type: 
  Country: None (occurrence: None)
  Receive Date: 20100330
  Receipt Date: 20100318
  Transmission Date: 20100710
  Serious: Yes (Other)
  Sender: FDA-Public Use
  Company Number: IE-PFIZER INC-2010016653

PATIENT
  Age: 73 Year
  Sex: Male

DRUGS (7)
  1. CHAMPIX [Suspect]
     Indication: SMOKING CESSATION THERAPY
     Dosage: 1 MG, 1X/DAY IN THE MORNING
     Route: 048
     Dates: start: 20100215, end: 20100228
  2. CIALIS [Concomitant]
     Dosage: 20 MG, 1X/DAY
     Route: 048
  3. SPIRIVA [Concomitant]
     Dosage: 18 UG, 1X/DAY
     Route: 055
  4. TRITACE [Concomitant]
     Dosage: 10 MG, 1X/DAY
     Route: 048
  5. IMDUR [Concomitant]
     Dosage: 60 MG, 1X/DAY
     Route: 048
  6. TAMSULOSIN [Concomitant]
     Dosage: 400 UG, 1X/DAY
     Route: 048
  7. NU-SEALS ASPIRIN [Concomitant]
     Dosage: 75 MG, 1X/DAY
     Route: 048

REACTIONS (4)
  - DISORIENTATION [None]
  - DIZZINESS [None]
  - MEMORY IMPAIRMENT [None]
  - THINKING ABNORMAL [None]
